FAERS Safety Report 11972116 (Version 5)
Quarter: 2017Q2

REPORT INFORMATION
  Report Type: Report from Study
  Country: AT (occurrence: AT)
  Receive Date: 20160128
  Receipt Date: 20170626
  Transmission Date: 20170829
  Serious: Yes (Death, Life-Threatening, Hospitalization, Disabling)
  Sender: FDA-Public Use
  Company Number: PHHO2015AT014304

PATIENT
  Age: 65 Year
  Sex: Female
  Weight: 54.7 kg

DRUGS (11)
  1. SPIRONO [Concomitant]
     Indication: FLUID RETENTION
     Dosage: 25 MG
     Route: 048
  2. AMPHO MORONAL [Concomitant]
     Active Substance: AMPHOTERICIN B
     Indication: PROPHYLAXIS
     Dosage: 4X2 PIP
     Route: 048
  3. HYDROMORPHON STADA [Concomitant]
     Indication: PAIN MANAGEMENT
     Dosage: 4 MG, BID
     Route: 048
  4. HYDAL [Concomitant]
     Active Substance: HYDROMORPHONE HYDROCHLORIDE
     Indication: PAIN MANAGEMENT
     Dosage: 2.6 MG, QD (UP TO 4 TBL)
     Route: 048
  5. LBH589 [Suspect]
     Active Substance: PANOBINOSTAT
     Dosage: 20 MG
     Route: 048
     Dates: start: 20151006, end: 20151016
  6. LBH589 [Suspect]
     Active Substance: PANOBINOSTAT
     Indication: PLASMA CELL MYELOMA
     Dosage: 20 MG
     Route: 048
     Dates: start: 20150827, end: 20150907
  7. COMPARATOR BORTEZOMIB [Suspect]
     Active Substance: BORTEZOMIB
     Indication: PLASMA CELL MYELOMA
     Dosage: 1.3 MG/M2
     Route: 058
     Dates: start: 20150827, end: 20150906
  8. LASIX [Concomitant]
     Active Substance: FUROSEMIDE
     Indication: FLUID RETENTION
     Dosage: 40 MG
     Route: 048
  9. PANTOPRAZOL [Concomitant]
     Active Substance: PANTOPRAZOLE SODIUM
     Indication: PROPHYLAXIS
     Dosage: 40 MG, UNK
     Route: 048
  10. THROMBO ASS [Concomitant]
     Active Substance: ASPIRIN
     Indication: THROMBOSIS PROPHYLAXIS
     Dosage: 100 MG
     Route: 048
  11. COMPARATOR DEXAMETHASONE [Suspect]
     Active Substance: DEXAMETHASONE
     Indication: PLASMA CELL MYELOMA
     Dosage: 20 MG
     Route: 048
     Dates: start: 20150827, end: 20150907

REACTIONS (13)
  - Neoplasm progression [Fatal]
  - Paresis [Not Recovered/Not Resolved]
  - Thrombocytopenia [Not Recovered/Not Resolved]
  - Subcutaneous abscess [Recovered/Resolved]
  - Staphylococcal infection [Recovered/Resolved]
  - Dyspnoea [Recovered/Resolved]
  - Pneumonia [Not Recovered/Not Resolved]
  - Cardiomegaly [Fatal]
  - Pulmonary oedema [Fatal]
  - Cardiogenic shock [Not Recovered/Not Resolved]
  - Atrial fibrillation [Not Recovered/Not Resolved]
  - Sepsis [Not Recovered/Not Resolved]
  - Leukopenia [Not Recovered/Not Resolved]

NARRATIVE: CASE EVENT DATE: 20150906
